FAERS Safety Report 6728057-3 (Version None)
Quarter: 2010Q2

REPORT INFORMATION
  Report Type: 
  Country: None (occurrence: None)
  Receive Date: 20100512
  Receipt Date: 20100219
  Transmission Date: 20101027
  Serious: Yes (Other)
  Sender: FDA-Public Use
  Company Number: 1000011220

PATIENT
  Age: 45 Year
  Sex: Female
  Weight: 108.8633 kg

DRUGS (12)
  1. SAVELLA [Suspect]
     Indication: FIBROMYALGIA
     Dosage: 12.5 MG (12.5 MG,1 IN 1 D),ORAL; 25 MG (12.5 MG,2 IN1 D),ORAL; 50 MG (25 MG,2 IN 1D),ORAL
     Route: 048
     Dates: start: 20091210, end: 20091210
  2. SAVELLA [Suspect]
     Indication: FIBROMYALGIA
     Dosage: 12.5 MG (12.5 MG,1 IN 1 D),ORAL; 25 MG (12.5 MG,2 IN1 D),ORAL; 50 MG (25 MG,2 IN 1D),ORAL
     Route: 048
     Dates: start: 20091211, end: 20091212
  3. SAVELLA [Suspect]
     Indication: FIBROMYALGIA
     Dosage: 12.5 MG (12.5 MG,1 IN 1 D),ORAL; 25 MG (12.5 MG,2 IN1 D),ORAL; 50 MG (25 MG,2 IN 1D),ORAL
     Route: 048
     Dates: start: 20091213, end: 20091216
  4. SAVELLA [Suspect]
     Indication: FIBROMYALGIA
     Dosage: 25 MG (50 MG,2 IN 1 D),ORAL
     Route: 048
     Dates: start: 20091217, end: 20091221
  5. PLAQUENIL [Concomitant]
  6. PHENERGAN [Concomitant]
  7. NEXIUM [Concomitant]
  8. NEURONTIN [Concomitant]
  9. FLEXERIL [Concomitant]
  10. DRISDOL [Concomitant]
  11. LORAZEPAM [Concomitant]
  12. DARVOCET-N 100 [Concomitant]

REACTIONS (2)
  - ANXIETY [None]
  - SUICIDAL IDEATION [None]
